FAERS Safety Report 14366873 (Version 2)
Quarter: 2018Q1

REPORT INFORMATION
  Report Type: Spontaneous
  Country: IT (occurrence: IT)
  Receive Date: 20180109
  Receipt Date: 20180110
  Transmission Date: 20180509
  Serious: Yes (Life-Threatening)
  Sender: FDA-Public Use
  Company Number: IT-PFIZER INC-2018007487

PATIENT
  Age: 67 Year
  Sex: Male

DRUGS (3)
  1. ISOTONIC SODIUM CHLORIDE SOLUTION [Concomitant]
     Active Substance: SODIUM CHLORIDE
     Dosage: 2 ML, UNK
     Dates: start: 19930920
  2. GENTAMICIN SULFATE. [Suspect]
     Active Substance: GENTAMICIN SULFATE
     Indication: BRONCHIECTASIS
     Dosage: UNK (3 ML OF A 40 MG.ML^-1 STANDARD SOLUTION DILUTED IN 2 ML OF ISOTONIC SALINE USING THE MIZER ACO)
     Route: 055
     Dates: start: 19930920
  3. SALBUTAMOL [Concomitant]
     Active Substance: ALBUTEROL
     Dosage: UNK (TWO PUFFS FROM A METERED-DOSE INHALER)
     Route: 055
     Dates: start: 19930920

REACTIONS (2)
  - Product use issue [Unknown]
  - Acute respiratory failure [Recovered/Resolved]

NARRATIVE: CASE EVENT DATE: 19930920
